FAERS Safety Report 5658081-3 (Version None)
Quarter: 2008Q1

REPORT INFORMATION
  Report Type: 
  Country: None (occurrence: None)
  Receive Date: 20080310
  Receipt Date: 20070119
  Transmission Date: 20080703
  Serious: No
  Sender: FDA-Public Use
  Company Number: US-BAYER-200615043BCC

PATIENT
  Age: 73 Year
  Sex: Female
  Weight: 68 kg

DRUGS (6)
  1. ALEVE [Suspect]
     Indication: ARTHRALGIA
     Dosage: TOTAL DAILY DOSE: 220 MG  UNIT DOSE: 220 MG
     Route: 048
     Dates: start: 20061216
  2. STORE BRAND MULTIVITAMIN [Concomitant]
  3. CALCIUM WITH VITAMIN D [Concomitant]
  4. COQ10 [Concomitant]
  5. VITAMIN B-12 [Concomitant]
  6. PREVACID [Concomitant]

REACTIONS (3)
  - FOREIGN BODY TRAUMA [None]
  - PHARYNGOLARYNGEAL PAIN [None]
  - THROAT IRRITATION [None]
